FAERS Safety Report 14632839 (Version 1)
Quarter: 2018Q1

REPORT INFORMATION
  Report Type: Spontaneous
  Country: FR (occurrence: FR)
  Receive Date: 20180313
  Receipt Date: 20180313
  Transmission Date: 20180509
  Serious: Yes (Disabling)
  Sender: FDA-Public Use
  Company Number: FR-TEVA-2018-FR-867322

PATIENT
  Age: 85 Year
  Sex: Male

DRUGS (19)
  1. STAGID [Concomitant]
     Active Substance: METFORMIN PAMOATE
  2. LATANOPROST. [Concomitant]
     Active Substance: LATANOPROST
  3. AVODART [Concomitant]
     Active Substance: DUTASTERIDE
  4. METRONIDAZOLE. [Concomitant]
     Active Substance: METRONIDAZOLE
  5. NEBIVOLOL. [Concomitant]
     Active Substance: NEBIVOLOL
  6. LEVOFLOXACIN. [Suspect]
     Active Substance: LEVOFLOXACIN
     Indication: LUNG DISORDER
     Route: 042
  7. AMBISOME [Suspect]
     Active Substance: AMPHOTERICIN B
     Indication: ASPERGILLUS INFECTION
     Route: 042
  8. BACTRIM [Suspect]
     Active Substance: SULFAMETHOXAZOLE\TRIMETHOPRIM
     Indication: PROPHYLAXIS
     Route: 042
  9. SUCRALFATE. [Concomitant]
     Active Substance: SUCRALFATE
  10. UROREC [Concomitant]
     Active Substance: SILODOSIN
  11. CEFTRIAXONE BASE [Suspect]
     Active Substance: CEFTRIAXONE
     Indication: LUNG DISORDER
     Route: 042
  12. CHLORHYDRATE DE DORZOLAMIDE [Concomitant]
  13. VFEND [Suspect]
     Active Substance: VORICONAZOLE
     Indication: ASPERGILLUS INFECTION
     Route: 048
  14. PARACETAMOL [Concomitant]
     Active Substance: ACETAMINOPHEN
  15. KARDEGIC [Concomitant]
     Active Substance: ASPIRIN DL-LYSINE
  16. PERINDOPRIL [Concomitant]
     Active Substance: PERINDOPRIL
  17. SEROPLEX [Concomitant]
     Active Substance: ESCITALOPRAM OXALATE
  18. ATOVAQUONE. [Concomitant]
     Active Substance: ATOVAQUONE
  19. FLECAINE [Concomitant]
     Active Substance: FLECAINIDE

REACTIONS (1)
  - Deafness [Not Recovered/Not Resolved]
